FAERS Safety Report 6834523-2 (Version None)
Quarter: 2010Q3

REPORT INFORMATION
  Report Type: 
  Country: None (occurrence: None)
  Receive Date: 20100712
  Receipt Date: 20070609
  Transmission Date: 20110219
  Serious: No
  Sender: FDA-Public Use
  Company Number: US-PFIZER INC-2007030777

PATIENT
  Sex: Male
  Weight: 90.7 kg

DRUGS (11)
  1. CHANTIX [Suspect]
     Indication: SMOKING CESSATION THERAPY
     Route: 048
     Dates: start: 20070101, end: 20070401
  2. ACETYLSALICYLIC ACID [Concomitant]
  3. VERAPAMIL [Concomitant]
  4. COUMADIN [Concomitant]
  5. METFORMIN HCL [Concomitant]
  6. SIMVASTATIN [Concomitant]
  7. ATENOLOL [Concomitant]
  8. LORAZEPAM [Concomitant]
  9. TERAZOSIN HCL [Concomitant]
  10. CITALOPRAM HYDROBROMIDE [Concomitant]
  11. OMEPRAZOLE [Concomitant]

REACTIONS (2)
  - DRUG INEFFECTIVE [None]
  - NO ADVERSE EVENT [None]
